FAERS Safety Report 16794216 (Version 1)
Quarter: 2019Q3

REPORT INFORMATION
  Report Type: Spontaneous
  Country: US (occurrence: US)
  Receive Date: 20190719
  Receipt Date: 20190719
  Transmission Date: 20191005
  Serious: No
  Sender: FDA-Public Use
  Company Number: None

PATIENT
  Age: 13 Year
  Sex: Male

DRUGS (1)
  1. TETRABENAZINE TAB 12.5MG [Suspect]
     Active Substance: TETRABENAZINE
     Dates: start: 201901

REACTIONS (2)
  - Product use issue [None]
  - Product use in unapproved indication [None]

NARRATIVE: CASE EVENT DATE: 20190131
